FAERS Safety Report 4609347-7 (Version None)
Quarter: 2005Q1

REPORT INFORMATION
  Report Type: 
  Country: None (occurrence: None)
  Receive Date: 20050314
  Receipt Date: 20050301
  Transmission Date: 20050727
  Serious: Yes (Hospitalization, Other)
  Sender: FDA-Public Use
  Company Number: 2004100634

PATIENT
  Age: 82 Year
  Sex: Female
  Weight: 53 kg

DRUGS (15)
  1. SULPERAZON (SULBACTAM, CEFOPERAZONE) [Suspect]
     Indication: URINARY TRACT INFECTION
     Dosage: 1-2 GRAMS (1 GRAM), INTRAVENOUS
     Route: 042
     Dates: start: 20041122, end: 20041124
  2. PRODIF (FOSFLUCONAZOLE) [Suspect]
     Indication: CANDIDIASIS
     Dosage: 504.5 MG, INTRAVENOUS
     Route: 042
     Dates: start: 20041124, end: 20041125
  3. CEFOTIAM HYDROCHLORIDE [Suspect]
     Indication: SEPSIS
     Dosage: 1-2 GRAMS ( 1 GRAM), INTRAVENOUS
     Route: 042
     Dates: start: 20041119, end: 20041122
  4. IMMUNE GLOBULIN INTRAVENOUS (HUMAN) [Suspect]
     Indication: URINARY TRACT INFECTION
     Dosage: 2.5-5 GRAMS (2.5 GRAM), INTRAVENOUS
     Route: 042
     Dates: start: 20041122, end: 20041124
  5. TEICOPLANIN (TEICOPLANIN) [Concomitant]
  6. DOPAMINE HCL [Concomitant]
  7. AMEZINIUM METILSULFATE (AMEZINIUM METILSULFATE) [Concomitant]
  8. URSODIOL [Concomitant]
  9. WARFARIN SODIUM [Concomitant]
  10. DISOPYRAMIDE [Concomitant]
  11. FAMOTIDINE [Concomitant]
  12. FUROSEMIDE [Concomitant]
  13. METOCLOPRAMIDE [Concomitant]
  14. ULINASTATIN (ULINASTATIN) [Concomitant]
  15. LOXOPROFEN SODIUM [Concomitant]

REACTIONS (20)
  - ALANINE AMINOTRANSFERASE INCREASED [None]
  - ASPARTATE AMINOTRANSFERASE INCREASED [None]
  - BACTERIA URINE IDENTIFIED [None]
  - BILIARY DILATATION [None]
  - BILIARY TRACT INFECTION [None]
  - BLOOD AMYLASE INCREASED [None]
  - CANDIDA SEROLOGY POSITIVE [None]
  - CANDIDIASIS [None]
  - CHILLS [None]
  - CONDITION AGGRAVATED [None]
  - ENTEROCOCCAL INFECTION [None]
  - EOSINOPHIL COUNT ABNORMAL [None]
  - FUNGUS URINE TEST POSITIVE [None]
  - GALLBLADDER DISORDER [None]
  - HEPATIC FUNCTION ABNORMAL [None]
  - LIVER DISORDER [None]
  - NAUSEA [None]
  - PANCREATITIS [None]
  - PYREXIA [None]
  - URINARY TRACT INFECTION [None]
